FAERS Safety Report 9835836 (Version 2)
Quarter: 2014Q1

REPORT INFORMATION
  Report Type: Spontaneous
  Country: CA (occurrence: CA)
  Receive Date: 20140122
  Receipt Date: 20140205
  Transmission Date: 20141002
  Serious: Yes (Hospitalization)
  Sender: FDA-Public Use
  Company Number: CA-009507513-1401CAN010027

PATIENT
  Age: 69 Year
  Sex: Male
  Weight: 70 kg

DRUGS (4)
  1. JANUMET [Suspect]
     Indication: DIABETES MELLITUS
     Dosage: 500/1000 BID
     Route: 065
     Dates: start: 201305, end: 201401
  2. LIPITOR [Concomitant]
     Dosage: 40 MG, QD
     Route: 065
  3. ASPIRIN [Concomitant]
     Dosage: 80 MG, QD
     Route: 065
  4. DIAMICRON [Concomitant]
     Dosage: 30 MG, QD
     Route: 065

REACTIONS (1)
  - Tubulointerstitial nephritis [Unknown]
